FAERS Safety Report 12289666 (Version 1)
Quarter: 2016Q2

REPORT INFORMATION
  Report Type: Spontaneous
  Country: US (occurrence: US)
  Receive Date: 20160421
  Receipt Date: 20160421
  Transmission Date: 20160815
  Serious: No
  Sender: FDA-Public Use
  Company Number: US-TEVA-600592USA

PATIENT
  Sex: Female

DRUGS (2)
  1. CEFALEXIN [Suspect]
     Active Substance: CEPHALEXIN
     Route: 065
  2. PENICILLIN [Suspect]
     Active Substance: PENICILLIN
     Route: 065

REACTIONS (1)
  - Drug hypersensitivity [Unknown]
